FAERS Safety Report 4614962-0 (Version None)
Quarter: 2005Q1

REPORT INFORMATION
  Report Type: 
  Country: None (occurrence: None)
  Receive Date: 20050322
  Receipt Date: 20050317
  Transmission Date: 20050727
  Serious: Yes (Life-Threatening, Hospitalization, Disabling)
  Sender: FDA-Public Use
  Company Number: ID-ROCHE-398842

PATIENT
  Age: 22 Year
  Sex: Male
  Weight: 55 kg

DRUGS (5)
  1. TORADOL [Suspect]
     Route: 042
     Dates: start: 20050217, end: 20050219
  2. SULPERAZON [Concomitant]
     Indication: INFECTION
     Route: 042
     Dates: start: 20050217, end: 20050219
  3. TRAMAL [Concomitant]
     Route: 042
     Dates: start: 20050217, end: 20050219
  4. CYANOCOBALAMIN [Concomitant]
     Indication: ILL-DEFINED DISORDER
     Route: 011
     Dates: start: 20050217, end: 20050219
  5. VITAMIN C [Concomitant]
     Route: 042
     Dates: start: 20050217, end: 20050219

REACTIONS (2)
  - HEMIPLEGIA [None]
  - THROMBOCYTOPENIA [None]
